FAERS Safety Report 7246431-6 (Version None)
Quarter: 2011Q1

REPORT INFORMATION
  Report Type: 
  Country: None (occurrence: None)
  Receive Date: 20110126
  Receipt Date: 20110112
  Transmission Date: 20110831
  Serious: Yes (Hospitalization)
  Sender: FDA-Public Use
  Company Number: GB-AMGEN-GBRSP2011003039

PATIENT
  Age: 57 Year
  Sex: Female
  Weight: 96 kg

DRUGS (7)
  1. BENDROFLUMETHIAZIDE [Concomitant]
  2. NAPROXEN [Concomitant]
  3. AMLODIPINE [Concomitant]
  4. FOLIC ACID [Concomitant]
  5. METHOTREXATE [Concomitant]
  6. ENBREL [Suspect]
     Indication: RHEUMATOID ARTHRITIS
     Dosage: 50 MG, WEEKLY
     Route: 058
     Dates: start: 20101208, end: 20101215
  7. CO-CODAMOL [Concomitant]

REACTIONS (3)
  - PALLOR [None]
  - ACUTE MYOCARDIAL INFARCTION [None]
  - PARAESTHESIA [None]
